FAERS Safety Report 9485985 (Version 3)
Quarter: 2013Q4

REPORT INFORMATION
  Report Type: Spontaneous
  Country: IE (occurrence: IE)
  Receive Date: 20130829
  Receipt Date: 20131211
  Transmission Date: 20140711
  Serious: Yes (Hospitalization)
  Sender: FDA-Public Use
  Company Number: IE-AMGEN-IRLSP2013059589

PATIENT
  Age: 81 Year
  Sex: Female

DRUGS (10)
  1. PROLIA [Suspect]
     Indication: PRODUCT USED FOR UNKNOWN INDICATION
     Dosage: 60 UNK, Q6MO
     Route: 065
  2. DIAMICRON [Concomitant]
     Dosage: 30 MG, UNK
  3. ELTROXIN [Concomitant]
  4. FOSAMAX [Concomitant]
     Dosage: 70 MG, QWK
  5. PROTIUM                            /01263204/ [Concomitant]
     Dosage: 40 MG, UNK
  6. BISOPROLOL [Concomitant]
     Dosage: 2.5 MG, UNK
  7. TRITACE [Concomitant]
     Dosage: 2.5 MG, UNK
  8. ZYPREXA [Concomitant]
  9. ZISPIN [Concomitant]
     Dosage: 45 MG, UNK
  10. FRISIUM [Concomitant]
     Dosage: 10 MG, UNK

REACTIONS (2)
  - Decreased immune responsiveness [Not Recovered/Not Resolved]
  - Lung infection [Not Recovered/Not Resolved]
